FAERS Safety Report 15400473 (Version 2)
Quarter: 2019Q2

REPORT INFORMATION
  Report Type: Report from Study
  Country: DE (occurrence: DE)
  Receive Date: 20180919
  Receipt Date: 20190430
  Transmission Date: 20190711
  Serious: Yes (Other)
  Sender: FDA-Public Use
  Company Number: DE-ROCHE-1851798

PATIENT
  Sex: Female
  Weight: 50 kg

DRUGS (18)
  1. RANIBIZUMAB. [Suspect]
     Active Substance: RANIBIZUMAB
     Dosage: 0.5 MG, 1X (RIGHT EYE)
     Route: 031
     Dates: start: 20151130
  2. RANIBIZUMAB. [Suspect]
     Active Substance: RANIBIZUMAB
     Dosage: 0.5 MG, 1X (LEFT EYE)
     Route: 031
     Dates: start: 20151207
  3. RANIBIZUMAB. [Suspect]
     Active Substance: RANIBIZUMAB
     Dosage: 0.5 MG, 1X (RIGHT EYE)
     Route: 031
     Dates: start: 20160125
  4. RANIBIZUMAB. [Suspect]
     Active Substance: RANIBIZUMAB
     Dosage: 0.5 MG, 1X (LEFT EYE)
     Route: 031
     Dates: start: 20160801
  5. RANIBIZUMAB. [Suspect]
     Active Substance: RANIBIZUMAB
     Dosage: 0.5 MG, 1X (LEFT EYE)
     Route: 031
     Dates: start: 20160104
  6. RANIBIZUMAB. [Suspect]
     Active Substance: RANIBIZUMAB
     Dosage: 0.5 MG, 1X (LEFT EYE)
     Route: 031
     Dates: start: 20160523
  7. RANIBIZUMAB. [Suspect]
     Active Substance: RANIBIZUMAB
     Dosage: 0.5 MG, 1X (RIGHT EYE)
     Route: 031
     Dates: start: 20160530
  8. RANIBIZUMAB. [Suspect]
     Active Substance: RANIBIZUMAB
     Dosage: 0.5 MG, 1X (LEFT EYE)
     Route: 031
     Dates: start: 20151109
  9. RANIBIZUMAB. [Suspect]
     Active Substance: RANIBIZUMAB
     Dosage: 0.5 MG, 1X (LEFT EYE)
     Route: 031
     Dates: start: 20160201
  10. RANIBIZUMAB. [Suspect]
     Active Substance: RANIBIZUMAB
     Dosage: 0.5 MG, 1X (RIGHT EYE)
     Route: 031
     Dates: start: 20160222
  11. RANIBIZUMAB. [Suspect]
     Active Substance: RANIBIZUMAB
     Dosage: 0.5 MG, 1X (LEFT EYE)
     Route: 031
     Dates: start: 20151012
  12. RANIBIZUMAB. [Suspect]
     Active Substance: RANIBIZUMAB
     Dosage: 0.5 MG, 1X (RIGHT EYE)
     Route: 031
     Dates: start: 20151102
  13. RANIBIZUMAB. [Suspect]
     Active Substance: RANIBIZUMAB
     Dosage: 0.5 MG, 1X (RIGHT EYE)
     Route: 031
     Dates: start: 20151228
  14. RANIBIZUMAB. [Suspect]
     Active Substance: RANIBIZUMAB
     Dosage: 0.5 MG, 1X (RIGHT EYE)
     Route: 031
     Dates: start: 20160404
  15. RANIBIZUMAB. [Suspect]
     Active Substance: RANIBIZUMAB
     Indication: NEOVASCULAR AGE-RELATED MACULAR DEGENERATION
     Dosage: 0.5 MG, 1X (RIGHT EYE)
     Route: 031
     Dates: start: 20150907
  16. RANIBIZUMAB. [Suspect]
     Active Substance: RANIBIZUMAB
     Dosage: 0.5 MG, 1X (RIGHT EYE)
     Route: 031
     Dates: start: 20151005
  17. RANIBIZUMAB. [Suspect]
     Active Substance: RANIBIZUMAB
     Dosage: 0.5 MG, 1X (LEFT EYE)
     Route: 031
     Dates: start: 20160321
  18. RANIBIZUMAB. [Suspect]
     Active Substance: RANIBIZUMAB
     Dosage: 0.5 MG, 1X (RIGHT EYE)
     Route: 031
     Dates: start: 20160811, end: 20160811

REACTIONS (3)
  - Visual acuity reduced [Unknown]
  - Macular oedema [Recovering/Resolving]
  - Retinal detachment [Recovering/Resolving]

NARRATIVE: CASE EVENT DATE: 20160823
